FAERS Safety Report 23172181 (Version 1)
Quarter: 2023Q4

REPORT INFORMATION
  Report Type: Spontaneous
  Country: IT (occurrence: IT)
  Receive Date: 20231110
  Receipt Date: 20231110
  Transmission Date: 20240109
  Serious: Yes (Hospitalization)
  Sender: FDA-Public Use
  Company Number: IT-SUN PHARMACEUTICAL INDUSTRIES LTD-2023RR-417763

PATIENT
  Age: 32 Year
  Sex: Female

DRUGS (3)
  1. CITALOPRAM [Suspect]
     Active Substance: CITALOPRAM HYDROBROMIDE
     Indication: Intentional self-injury
     Dosage: 3 DOSAGE FORM
     Route: 048
     Dates: start: 20230202, end: 20230202
  2. OLANZAPINE [Suspect]
     Active Substance: OLANZAPINE
     Indication: Intentional self-injury
     Dosage: 3 DOSAGE FORM
     Route: 048
     Dates: start: 20230202, end: 20230202
  3. EN [Suspect]
     Active Substance: DELORAZEPAM
     Indication: Intentional self-injury
     Dosage: 1 DOSAGE FORM
     Dates: start: 20230202, end: 20230202

REACTIONS (1)
  - Sopor [Unknown]

NARRATIVE: CASE EVENT DATE: 20230202
